FAERS Safety Report 4623227-2 (Version None)
Quarter: 2005Q1

REPORT INFORMATION
  Report Type: 
  Country: None (occurrence: None)
  Receive Date: 20050329
  Receipt Date: 20050315
  Transmission Date: 20050727
  Serious: Yes (Other)
  Sender: FDA-Public Use
  Company Number: S05-USA-00787-01

PATIENT
  Age: 3 Month
  Sex: Female

DRUGS (8)
  1. LEVOTHROID [Suspect]
     Indication: HYPOTHYROIDISM
     Dosage: 25 MCG QD PO
     Route: 048
     Dates: start: 20040801, end: 20040901
  2. LEVOTHROID [Suspect]
     Indication: HYPOTHYROIDISM
     Dosage: 25 MCG PO
     Route: 048
     Dates: start: 20040901, end: 20050120
  3. LEVOTHROID [Suspect]
     Indication: HYPOTHYROIDISM
     Dosage: 12.5 MCG BIW PO
     Route: 048
     Dates: start: 20040901, end: 20050120
  4. LEVOTHROID [Suspect]
     Indication: HYPOTHYROIDISM
     Dosage: 25 MCG QOD PO
     Route: 048
     Dates: start: 20050121, end: 20050206
  5. LEVOTHROID [Suspect]
     Indication: HYPOTHYROIDISM
     Dosage: 37.5 MCG QOD PO
     Route: 048
     Dates: start: 20050121, end: 20050206
  6. LEVOTHROID [Suspect]
     Indication: HYPOTHYROIDISM
     Dosage: 37.5 MCG QD PO
     Route: 048
     Dates: start: 20050207, end: 20050211
  7. LEVOTHROID [Suspect]
     Indication: HYPOTHYROIDISM
     Dosage: 25 MCG TIW PO
     Route: 048
     Dates: start: 20050216
  8. LEVOTHROID [Suspect]
     Indication: HYPOTHYROIDISM
     Dosage: 12.5 MCG BIW PO
     Route: 048
     Dates: start: 20050216

REACTIONS (10)
  - BLOOD THYROID STIMULATING HORMONE DECREASED [None]
  - DIARRHOEA [None]
  - HYPERHIDROSIS [None]
  - INSOMNIA [None]
  - IRRITABILITY [None]
  - MYOCLONUS [None]
  - NERVOUSNESS [None]
  - PERSONALITY CHANGE [None]
  - VIRAL INFECTION [None]
  - VOMITING [None]
